FAERS Safety Report 15518029 (Version 3)
Quarter: 2020Q3

REPORT INFORMATION
  Report Type: Spontaneous
  Country: US (occurrence: US)
  Receive Date: 20181017
  Receipt Date: 20200907
  Transmission Date: 20201102
  Serious: Yes (Disabling, Other)
  Sender: FDA-Public Use
  Company Number: US-AMGEN-USASP2018142773

PATIENT
  Age: 57 Year
  Sex: Female

DRUGS (6)
  1. PROLIA [Suspect]
     Active Substance: DENOSUMAB
     Indication: OSTEOPOROSIS POSTMENOPAUSAL
     Dosage: UNK UNK, Q6MO
     Route: 065
     Dates: start: 20150929
  2. PROLIA [Suspect]
     Active Substance: DENOSUMAB
     Indication: OSTEOPENIA
     Dosage: UNK
     Route: 065
  3. VITAMIN D [Concomitant]
     Active Substance: VITAMIN D NOS
     Dosage: 1000 UNIT, UNK
  4. LYRICA [Concomitant]
     Active Substance: PREGABALIN
     Indication: PAIN
     Dosage: 100 MG, UNK
  5. PROLIA [Suspect]
     Active Substance: DENOSUMAB
     Dosage: UNK
     Route: 065
  6. PROLIA [Suspect]
     Active Substance: DENOSUMAB
     Dosage: UNK
     Route: 065
     Dates: end: 20170420

REACTIONS (12)
  - Wrist fracture [Unknown]
  - Spinal deformity [Unknown]
  - Mobility decreased [Unknown]
  - Spinal compression fracture [Unknown]
  - Spinal osteoarthritis [Not Recovered/Not Resolved]
  - Radius fracture [Unknown]
  - Intervertebral disc protrusion [Unknown]
  - Osteonecrosis [Unknown]
  - Upper limb fracture [Unknown]
  - Kyphosis [Unknown]
  - Fall [Unknown]
  - Rebound effect [Unknown]

NARRATIVE: CASE EVENT DATE: 201709
